FAERS Safety Report 6291651-0 (Version None)
Quarter: 2009Q3

REPORT INFORMATION
  Report Type: 
  Country: None (occurrence: None)
  Receive Date: 20090730
  Receipt Date: 20090720
  Transmission Date: 20100115
  Serious: Yes (Hospitalization)
  Sender: FDA-Public Use
  Company Number: KR-ELI_LILLY_AND_COMPANY-KR200907004635

PATIENT
  Age: 75 Year
  Sex: Female
  Weight: 40 kg

DRUGS (2)
  1. FORTEO [Suspect]
     Indication: OSTEOPOROSIS
     Dosage: 20 UG, DAILY (1/D)
     Route: 058
     Dates: start: 20090710, end: 20090710
  2. ANTIHYPERTENSIVES [Concomitant]

REACTIONS (5)
  - ASTHENIA [None]
  - BACK PAIN [None]
  - CHILLS [None]
  - DEPRESSED MOOD [None]
  - INFLUENZA LIKE ILLNESS [None]
